FAERS Safety Report 10657216 (Version 1)
Quarter: 2014Q4

REPORT INFORMATION
  Report Type: Spontaneous
  Country: US (occurrence: US)
  Receive Date: 20141217
  Receipt Date: 20141217
  Transmission Date: 20150529
  Serious: Yes (Hospitalization, Other)
  Sender: FDA-Public Use
  Company Number: US-APOTEX-2014AP006122

PATIENT
  Age: 59 Year
  Sex: Male

DRUGS (2)
  1. LISINOPRIL AND HYDROCHLOROTHIAZIDE [Suspect]
     Active Substance: HYDROCHLOROTHIAZIDE\LISINOPRIL
     Indication: HYPERTENSION
     Dosage: 20/25 DAILY
     Route: 065
  2. NABUMETONE TABLETS USP [Suspect]
     Active Substance: NABUMETONE
     Indication: OSTEOARTHRITIS
     Dosage: 1000 MG, DAILY
     Route: 065

REACTIONS (5)
  - Metabolic acidosis [Unknown]
  - Acute kidney injury [Recovering/Resolving]
  - Hyperkalaemia [Unknown]
  - Hypotension [Recovered/Resolved]
  - Anaemia [Unknown]

NARRATIVE: CASE EVENT DATE: 201302
